FAERS Safety Report 6287502-0 (Version None)
Quarter: 2009Q3

REPORT INFORMATION
  Report Type: 
  Country: None (occurrence: None)
  Receive Date: 20090727
  Receipt Date: 20090715
  Transmission Date: 20100115
  Serious: Yes (Death, Other)
  Sender: FDA-Public Use
  Company Number: CERZ-1000739

PATIENT
  Age: 76 Year
  Sex: Male
  Weight: 87.7 kg

DRUGS (1)
  1. CEREZYME [Suspect]
     Indication: GAUCHER'S DISEASE
     Dosage: INTRAVENOUS
     Route: 042
     Dates: start: 19940101

REACTIONS (2)
  - SEPTIC SHOCK [None]
  - THYROID CANCER [None]
